FAERS Safety Report 8610697-8 (Version None)
Quarter: 2012Q3

REPORT INFORMATION
  Report Type: 
  Country: None (occurrence: None)
  Receive Date: 20120822
  Receipt Date: 20120814
  Transmission Date: 20120928
  Serious: Yes (Hospitalization)
  Sender: FDA-Public Use
  Company Number: ZA-NOVOPROD-325031

PATIENT
  Age: 33 Year
  Sex: Female
  Weight: 74 kg

DRUGS (2)
  1. NOVORAPID FLEXPEN [Suspect]
     Indication: DIABETES MELLITUS
     Dosage: 51 U, QD
     Route: 058
     Dates: start: 20110311
  2. LEVEMIR [Suspect]
     Indication: DIABETES MELLITUS
     Dosage: 25 U, QD
     Route: 058
     Dates: start: 20110311

REACTIONS (4)
  - PAIN [None]
  - DIABETES MELLITUS INADEQUATE CONTROL [None]
  - MATERNAL EXPOSURE DURING PREGNANCY [None]
  - NAUSEA [None]
